FAERS Safety Report 16129293 (Version 2)
Quarter: 2019Q2

REPORT INFORMATION
  Report Type: Spontaneous
  Country: US (occurrence: US)
  Receive Date: 20190328
  Receipt Date: 20190612
  Transmission Date: 20190711
  Serious: No
  Sender: FDA-Public Use
  Company Number: US-TEVA-2019-US-1019613

PATIENT
  Age: 81 Year
  Sex: Female

DRUGS (3)
  1. CLONIDINE TRANSDERMAL PATCHES [Suspect]
     Active Substance: CLONIDINE
     Route: 065
  2. HYDRALAZINE [Concomitant]
     Active Substance: HYDRALAZINE HYDROCHLORIDE
     Dosage: 125 MILLIGRAM DAILY; 25 MG: 2 MORNING, 1 NOON, 2 NIGHT
  3. CLONIDINE TRANSDERMAL PATCHES [Suspect]
     Active Substance: CLONIDINE
     Indication: HYPERTENSION
     Dosage: .1 MILLIGRAM DAILY;
     Route: 065
     Dates: start: 20181213

REACTIONS (9)
  - Fatigue [Not Recovered/Not Resolved]
  - Hypertension [Not Recovered/Not Resolved]
  - Drug ineffective [Unknown]
  - Bone pain [Not Recovered/Not Resolved]
  - Malaise [Not Recovered/Not Resolved]
  - Irritability [Not Recovered/Not Resolved]
  - Insomnia [Not Recovered/Not Resolved]
  - Dizziness [Not Recovered/Not Resolved]
  - Headache [Not Recovered/Not Resolved]
